FAERS Safety Report 7838058-X (Version None)
Quarter: 2011Q4

REPORT INFORMATION
  Report Type: 
  Country: None (occurrence: None)
  Receive Date: 20111024
  Receipt Date: 20101227
  Transmission Date: 20120403
  Serious: Yes (Other)
  Sender: FDA-Public Use
  Company Number: JP-BAYER-201015877BYL

PATIENT
  Age: 22 Year
  Sex: Female
  Weight: 50 kg

DRUGS (8)
  1. MAGNEVIST [Suspect]
     Dosage: 10 ML, ONCE
     Route: 042
     Dates: start: 20101111, end: 20101111
  2. IMMUNE GLOBULIN INTRAVENOUS (HUMAN) [Suspect]
     Indication: MILLER FISHER SYNDROME
     Dosage: UNK
     Route: 042
     Dates: start: 20101026, end: 20101030
  3. MUCOSTA [Concomitant]
     Indication: PRODUCT USED FOR UNKNOWN INDICATION
     Dosage: DAILY DOSE 300 MG
     Route: 048
     Dates: start: 20101025, end: 20101029
  4. MAGNEVIST [Suspect]
     Indication: NUCLEAR MAGNETIC RESONANCE IMAGING
     Dosage: 10 ML, ONCE
     Route: 042
     Dates: start: 20101029, end: 20101029
  5. MAGNEVIST [Suspect]
     Dosage: 10 ML, ONCE
     Route: 042
     Dates: start: 20101105, end: 20101105
  6. LOXONIN [Suspect]
     Indication: MILLER FISHER SYNDROME
     Dosage: DAILY DOSE 180 MG
     Route: 048
     Dates: start: 20101025, end: 20101029
  7. CEFAZOLIN SODIUM [Concomitant]
     Indication: PRODUCT USED FOR UNKNOWN INDICATION
     Dosage: DAILY DOSE 3 G
     Route: 048
     Dates: start: 20101031, end: 20101102
  8. METHYLPREDNISOLONE SODIUM SUCCINATE [Concomitant]
     Indication: PRODUCT USED FOR UNKNOWN INDICATION
     Dosage: DAILY DOSE 1 G
     Route: 042
     Dates: start: 20101112, end: 20101114

REACTIONS (1)
  - HEPATIC FUNCTION ABNORMAL [None]
